FAERS Safety Report 4811585-5 (Version None)
Quarter: 2005Q4

REPORT INFORMATION
  Report Type: 
  Country: None (occurrence: None)
  Receive Date: 20051025
  Receipt Date: 20051014
  Transmission Date: 20060501
  Serious: Yes (Hospitalization)
  Sender: FDA-Public Use
  Company Number: 12693

PATIENT
  Age: 58 Year
  Sex: Female
  Weight: 54 kg

DRUGS (4)
  1. METHOTREXATE [Suspect]
     Indication: RHEUMATOID ARTHRITIS
     Dosage: 10 MG PO
     Route: 048
     Dates: start: 20050819, end: 20050929
  2. DICLOFENAC [Concomitant]
  3. ACETAMINOPHEN [Concomitant]
  4. FOLIC ACID [Concomitant]

REACTIONS (3)
  - LETHARGY [None]
  - LIVER FUNCTION TEST ABNORMAL [None]
  - MALAISE [None]
